FAERS Safety Report 21793827 (Version 1)
Quarter: 2022Q4

REPORT INFORMATION
  Report Type: Spontaneous
  Country: US (occurrence: None)
  Receive Date: 20221228
  Receipt Date: 20221228
  Transmission Date: 20230112
  Serious: Yes (Hospitalization)
  Sender: FDA-Public Use
  Company Number: None

PATIENT
  Age: 78 Year
  Sex: Male
  Weight: 73.6 kg

DRUGS (6)
  1. YESCARTA [Suspect]
     Active Substance: AXICABTAGENE CILOLEUCEL
     Indication: Lymphoma
     Dosage: FREQUENCY : ONCE;?
     Route: 041
     Dates: start: 20221031
  2. ACTEMRA [Concomitant]
     Active Substance: TOCILIZUMAB
     Dates: end: 20221102
  3. anakinra (Kineret) [Concomitant]
     Dates: end: 20221111
  4. dexAMETHasone (Decadron) injection [Concomitant]
     Dates: end: 20221128
  5. levETIRAcetam (Keppra [Concomitant]
     Dates: start: 20221030, end: 20221228
  6. acyclovir (Zovirax [Concomitant]
     Dates: start: 20221030, end: 20221228

REACTIONS (2)
  - Cytokine release syndrome [None]
  - Immune effector cell-associated neurotoxicity syndrome [None]

NARRATIVE: CASE EVENT DATE: 20221031
